FAERS Safety Report 5364226-5 (Version None)
Quarter: 2007Q2

REPORT INFORMATION
  Report Type: 
  Country: None (occurrence: None)
  Receive Date: 20070620
  Receipt Date: 20070619
  Transmission Date: 20071010
  Serious: Yes (Hospitalization, Other)
  Sender: FDA-Public Use
  Company Number: HQWYE688319JUN07

PATIENT
  Sex: Female

DRUGS (5)
  1. OROKEN [Suspect]
     Indication: URINARY TRACT INFECTION
     Dosage: UNKNOWN
     Route: 048
     Dates: start: 20050906, end: 20050915
  2. PARACETAMOL [Suspect]
     Dosage: 3 G DAILY
     Route: 048
  3. THIOCOLCHICOSIDE [Suspect]
     Dosage: UNKNOWN
     Route: 048
     Dates: end: 20050907
  4. TRAMADOL HCL [Suspect]
     Dosage: UNKNOWN
     Route: 048
     Dates: end: 20050907
  5. ATHYMIL [Suspect]
     Dosage: UNKNOWN
     Route: 048
     Dates: start: 20050701, end: 20050907

REACTIONS (2)
  - ABORTION SPONTANEOUS [None]
  - DRUG EXPOSURE DURING PREGNANCY [None]
